FAERS Safety Report 12702986 (Version 1)
Quarter: 2016Q3

REPORT INFORMATION
  Report Type: Spontaneous
  Country: GB (occurrence: GB)
  Receive Date: 20160831
  Receipt Date: 20160831
  Transmission Date: 20161109
  Serious: Yes (Hospitalization)
  Sender: FDA-Public Use
  Company Number: PHHY2016GB116603

PATIENT
  Age: 62 Year
  Sex: Female

DRUGS (6)
  1. CIPROFLOXACIN. [Interacting]
     Active Substance: CIPROFLOXACIN
     Indication: URINARY TRACT INFECTION
     Route: 065
  2. NICORANDIL [Concomitant]
     Active Substance: NICORANDIL
     Indication: PRODUCT USED FOR UNKNOWN INDICATION
     Dosage: 10 MG, BD
     Route: 065
  3. ASPIRIN//ACETYLSALICYLIC ACID [Concomitant]
     Active Substance: ASPIRIN
     Indication: PRODUCT USED FOR UNKNOWN INDICATION
     Dosage: 75 MG, QID
     Route: 065
  4. GLYCEROLTRINITRAT [Concomitant]
     Indication: PRODUCT USED FOR UNKNOWN INDICATION
     Dosage: 400 UG, PRN
     Route: 065
  5. BISOPROL [Concomitant]
     Indication: PRODUCT USED FOR UNKNOWN INDICATION
     Dosage: 5 MG, QID
     Route: 065
  6. SIMVASTATIN. [Suspect]
     Active Substance: SIMVASTATIN
     Indication: PRODUCT USED FOR UNKNOWN INDICATION
     Dosage: 40 MG, NOCTE
     Route: 065

REACTIONS (2)
  - Rhabdomyolysis [Recovering/Resolving]
  - Drug interaction [Unknown]
